FAERS Safety Report 4895077-3 (Version None)
Quarter: 2006Q1

REPORT INFORMATION
  Report Type: 
  Country: None (occurrence: None)
  Receive Date: 20060130
  Receipt Date: 20060119
  Transmission Date: 20060701
  Serious: Yes (Hospitalization, Disabling)
  Sender: FDA-Public Use
  Company Number: US-BRISTOL-MYERS SQUIBB COMPANY-13254792

PATIENT
  Sex: Male

DRUGS (9)
  1. COUMADIN [Suspect]
     Indication: CARDIAC DISORDER
  2. COREG [Concomitant]
     Indication: BLOOD PRESSURE
  3. ZOLOFT [Concomitant]
     Indication: DEPRESSION
  4. DIGITEK [Concomitant]
  5. LIPITOR [Concomitant]
     Indication: BLOOD CHOLESTEROL INCREASED
  6. LASIX [Concomitant]
  7. LISINOPRIL [Concomitant]
  8. ACIPHEX [Concomitant]
  9. PREVACID [Concomitant]

REACTIONS (2)
  - HAEMORRHAGE [None]
  - NERVE INJURY [None]
